FAERS Safety Report 5260772-3 (Version None)
Quarter: 2007Q1

REPORT INFORMATION
  Report Type: 
  Country: None (occurrence: None)
  Receive Date: 20070309
  Receipt Date: 20070226
  Transmission Date: 20070707
  Serious: Yes (Other)
  Sender: FDA-Public Use
  Company Number: HQWYE135522DEC05

PATIENT
  Sex: Female

DRUGS (7)
  1. EFFEXOR [Suspect]
     Dosage: UNKNOWN
     Route: 065
  2. ZYPREXA [Suspect]
     Dosage: UNKNOWN
     Route: 065
     Dates: end: 20040701
  3. ABILIFY [Suspect]
     Dosage: UNKNOWN
     Route: 065
     Dates: end: 20040701
  4. TEGRETOL [Suspect]
     Dosage: UNKNOWN
     Route: 065
     Dates: end: 20040701
  5. TRILEPTAL [Suspect]
     Dosage: UNKNOWN
     Route: 065
     Dates: end: 20040701
  6. WELLBUTRIN [Suspect]
     Dosage: UNKNOWN
     Route: 065
     Dates: end: 20040701
  7. LITHIUM CARBONATE [Suspect]
     Dosage: UNKNOWN
     Route: 065
     Dates: end: 20040701

REACTIONS (41)
  - ALOPECIA [None]
  - BLOOD DISORDER [None]
  - COUGH [None]
  - DEHYDRATION [None]
  - DIABETES MELLITUS [None]
  - DIARRHOEA [None]
  - DIZZINESS [None]
  - DRUG WITHDRAWAL SYNDROME [None]
  - DYSPHONIA [None]
  - FLATULENCE [None]
  - GASTRIC DISORDER [None]
  - GASTROINTESTINAL DISORDER [None]
  - HEADACHE [None]
  - HEARING IMPAIRED [None]
  - HIATUS HERNIA [None]
  - HYPOGLYCAEMIA [None]
  - LETHARGY [None]
  - LIVER DISORDER [None]
  - MEMORY IMPAIRMENT [None]
  - NASAL CONGESTION [None]
  - NAUSEA [None]
  - NEPHROLITHIASIS [None]
  - OSTEOARTHRITIS [None]
  - PAIN [None]
  - PANCREATIC DISORDER [None]
  - PYREXIA [None]
  - RENAL DISORDER [None]
  - RENAL IMPAIRMENT [None]
  - RHEUMATOID ARTHRITIS [None]
  - RHINORRHOEA [None]
  - SEDATION [None]
  - SOMNOLENCE [None]
  - SUICIDE ATTEMPT [None]
  - SYNCOPE [None]
  - ULCER [None]
  - UNEVALUABLE EVENT [None]
  - VISION BLURRED [None]
  - VOMITING [None]
  - WEIGHT DECREASED [None]
  - WEIGHT INCREASED [None]
  - YELLOW SKIN [None]
